FAERS Safety Report 12830256 (Version 1)
Quarter: 2016Q4

REPORT INFORMATION
  Report Type: Spontaneous
  Country: US (occurrence: US)
  Receive Date: 20161007
  Receipt Date: 20161007
  Transmission Date: 20170207
  Serious: No
  Sender: FDA-Public Use
  Company Number: US-SA-2016SA160837

PATIENT
  Age: 53 Year
  Sex: Female

DRUGS (2)
  1. AUBAGIO [Suspect]
     Active Substance: TERIFLUNOMIDE
     Indication: MULTIPLE SCLEROSIS
     Route: 048
     Dates: start: 20151125, end: 20160728
  2. AUBAGIO [Suspect]
     Active Substance: TERIFLUNOMIDE
     Indication: MULTIPLE SCLEROSIS
     Route: 048
     Dates: start: 20160729, end: 20160822

REACTIONS (7)
  - Sleep disorder [Unknown]
  - Hypoaesthesia [Unknown]
  - Contusion [Unknown]
  - Pain [Unknown]
  - Paraesthesia [Unknown]
  - Burning sensation [Unknown]
  - Alopecia [Unknown]

NARRATIVE: CASE EVENT DATE: 20160822
